FAERS Safety Report 9494070 (Version 1)
Quarter: 2013Q3

REPORT INFORMATION
  Report Type: Spontaneous
  Country: ES (occurrence: None)
  Receive Date: 20130827
  Receipt Date: 20130827
  Transmission Date: 20140515
  Serious: Yes (Hospitalization)
  Sender: FDA-Public Use
  Company Number: 2013P1018540

PATIENT
  Age: 2 Year
  Sex: Male

DRUGS (1)
  1. ISONIAZID [Suspect]
     Indication: TUBERCULOSIS
     Route: 048

REACTIONS (10)
  - Tonic clonic movements [None]
  - Trismus [None]
  - Disorientation [None]
  - Hypertonia [None]
  - Postictal state [None]
  - Convulsion [None]
  - Agitation [None]
  - Metabolic acidosis [None]
  - Hyperglycaemia [None]
  - Accidental poisoning [None]
